FAERS Safety Report 16042903 (Version 1)
Quarter: 2019Q1

REPORT INFORMATION
  Report Type: Spontaneous
  Country: US (occurrence: US)
  Receive Date: 20190306
  Receipt Date: 20190306
  Transmission Date: 20190418
  Serious: No
  Sender: FDA-Public Use
  Company Number: US-PFIZER INC-2019066087

PATIENT
  Age: 45 Year
  Sex: Female
  Weight: 64.41 kg

DRUGS (2)
  1. ELIQUIS [Concomitant]
     Active Substance: APIXABAN
     Indication: CARDIAC DISORDER
     Dosage: UNK
  2. REVATIO [Suspect]
     Active Substance: SILDENAFIL CITRATE
     Indication: CARDIAC OPERATION
     Dosage: 20 MG, 3X/DAY
     Route: 048
     Dates: start: 201105

REACTIONS (6)
  - Product use in unapproved indication [Unknown]
  - Cardiac disorder [Unknown]
  - Pain [Not Recovered/Not Resolved]
  - Fluid retention [Recovering/Resolving]
  - Language disorder [Unknown]
  - Swelling face [Unknown]

NARRATIVE: CASE EVENT DATE: 201105
